FAERS Safety Report 24294026 (Version 1)
Quarter: 2024Q3

REPORT INFORMATION
  Report Type: Spontaneous
  Country: US (occurrence: None)
  Receive Date: 20240906
  Receipt Date: 20240906
  Transmission Date: 20241016
  Serious: No
  Sender: DOMPE FARMACEUTICI
  Company Number: US-FARMAPROD-202308-202403-1001

PATIENT
  Age: 54 Year
  Sex: Female

DRUGS (13)
  1. OXERVATE [Suspect]
     Active Substance: CENEGERMIN-BKBJ
     Indication: Neurotrophic keratopathy
     Route: 047
     Dates: start: 20240318, end: 202404
  2. FISH OIL [Concomitant]
     Active Substance: FISH OIL
     Dosage: 300-1000MG
  3. VITAMIN B1 [Concomitant]
     Active Substance: THIAMINE HYDROCHLORIDE
  4. BIOTIN [Concomitant]
     Active Substance: BIOTIN
  5. CYCLOSPORINE [Concomitant]
     Active Substance: CYCLOSPORINE
  6. MULTIVITAMIN 50 PLUS [Concomitant]
  7. VITAMIN B12 [Concomitant]
     Active Substance: CYANOCOBALAMIN
  8. GABAPENTIN [Concomitant]
     Active Substance: GABAPENTIN
  9. BUPROPION [Concomitant]
     Active Substance: BUPROPION
     Dosage: 24 HOURS
  10. MEDROXYPROGESTERONE ACETATE [Concomitant]
     Active Substance: MEDROXYPROGESTERONE ACETATE
  11. HORMONE PROTECT [Concomitant]
     Dosage: 150MG-30MG
  12. GABAPENTIN [Concomitant]
     Active Substance: GABAPENTIN
  13. ESTRADIOL [Concomitant]
     Active Substance: ESTRADIOL
     Dosage: PATCH
     Route: 061

REACTIONS (5)
  - Eye pain [Recovering/Resolving]
  - Dry eye [Unknown]
  - Eye discharge [Unknown]
  - Product dose omission issue [Unknown]
  - Therapy interrupted [Unknown]

NARRATIVE: CASE EVENT DATE: 20240301
